FAERS Safety Report 20699714 (Version 4)
Quarter: 2022Q4

REPORT INFORMATION
  Report Type: Report from Study
  Country: GT (occurrence: GT)
  Receive Date: 20220412
  Receipt Date: 20221020
  Transmission Date: 20230113
  Serious: Yes (Hospitalization, Other)
  Sender: FDA-Public Use
  Company Number: GT-NOVARTISPH-NVSC2022GT081189

PATIENT
  Sex: Male

DRUGS (4)
  1. SACUBITRIL\VALSARTAN [Suspect]
     Active Substance: SACUBITRIL\VALSARTAN
     Indication: Cardiac failure
     Dosage: 50 MG (APPROXIMATELY 4 MONTHS AGO)
     Route: 065
  2. SACUBITRIL\VALSARTAN [Suspect]
     Active Substance: SACUBITRIL\VALSARTAN
     Dosage: 50 MG, QD
     Route: 048
     Dates: start: 2021, end: 202203
  3. SACUBITRIL\VALSARTAN [Suspect]
     Active Substance: SACUBITRIL\VALSARTAN
     Dosage: 100 MG, QD
     Route: 048
     Dates: start: 202203
  4. SACUBITRIL\VALSARTAN [Suspect]
     Active Substance: SACUBITRIL\VALSARTAN
     Dosage: 50 MG, BID (2  TABLETS  DAILY)
     Route: 048

REACTIONS (6)
  - Cerebrovascular accident [Not Recovered/Not Resolved]
  - Aphasia [Unknown]
  - Infarction [Unknown]
  - Blood pressure increased [Unknown]
  - Inappropriate schedule of product administration [Unknown]
  - Product dispensing error [Not Recovered/Not Resolved]

NARRATIVE: CASE EVENT DATE: 20210101
